FAERS Safety Report 5603811-X (Version None)
Quarter: 2008Q1

REPORT INFORMATION
  Report Type: 
  Country: None (occurrence: None)
  Receive Date: 20080128
  Receipt Date: 20080114
  Transmission Date: 20080703
  Serious: Yes (Hospitalization, Other)
  Sender: FDA-Public Use
  Company Number: US-BAYER-US-2007-036208

PATIENT
  Age: 53 Year
  Sex: Female
  Weight: 77 kg

DRUGS (11)
  1. BETASERON [Suspect]
     Indication: RELAPSING-REMITTING MULTIPLE SCLEROSIS
     Dosage: TOTAL DAILY DOSE: 8 MIU
     Route: 058
     Dates: end: 20060201
  2. ASPIRIN [Concomitant]
     Dosage: TOTAL DAILY DOSE: 325 MG
  3. GABAPENTIN [Concomitant]
     Dosage: TOTAL DAILY DOSE: 600 MG
  4. HYDROCHLOROTHIAZIDE [Concomitant]
     Dosage: TOTAL DAILY DOSE: 12.5 MG
  5. SENOKOT [Concomitant]
  6. NOVOLOG [Concomitant]
  7. LANTUS [Concomitant]
     Dosage: TOTAL DAILY DOSE: 18 U
  8. SIMVASTATIN [Concomitant]
  9. SERTRALINE [Concomitant]
     Dosage: TOTAL DAILY DOSE: 200 MG
  10. TRAZODONE HCL [Concomitant]
  11. AVAPRO [Concomitant]
     Dosage: TOTAL DAILY DOSE: 150 MG

REACTIONS (5)
  - BLOOD GLUCOSE ABNORMAL [None]
  - BLOOD GLUCOSE INCREASED [None]
  - CARDIOVASCULAR DISORDER [None]
  - COMA [None]
  - LOSS OF CONSCIOUSNESS [None]
